FAERS Safety Report 13157308 (Version 1)
Quarter: 2017Q1

REPORT INFORMATION
  Report Type: Spontaneous
  Country: US (occurrence: US)
  Receive Date: 20170127
  Receipt Date: 20170127
  Transmission Date: 20170428
  Serious: Yes (Other)
  Sender: FDA-Public Use
  Company Number: US-BEH-2017077591

PATIENT
  Sex: Female
  Weight: 38.55 kg

DRUGS (25)
  1. PREDNISONE. [Concomitant]
     Active Substance: PREDNISONE
  2. MUPIROCIN. [Concomitant]
     Active Substance: MUPIROCIN
  3. HIZENTRA [Suspect]
     Active Substance: HUMAN IMMUNOGLOBULIN G
     Dosage: UNK
     Route: 058
  4. EPIPEN [Concomitant]
     Active Substance: EPINEPHRINE
  5. ALLERGY                            /00000402/ [Concomitant]
  6. HIZENTRA [Suspect]
     Active Substance: HUMAN IMMUNOGLOBULIN G
     Indication: SELECTIVE IGG SUBCLASS DEFICIENCY
     Dosage: 5 G, AS DIRECTED
     Route: 058
  7. MELOXICAM. [Concomitant]
     Active Substance: MELOXICAM
  8. PATANASE [Concomitant]
     Active Substance: OLOPATADINE HYDROCHLORIDE
  9. OMEPRAZOLE. [Concomitant]
     Active Substance: OMEPRAZOLE
  10. IBUPROFEN. [Concomitant]
     Active Substance: IBUPROFEN
  11. FERROUS SULFATE. [Concomitant]
     Active Substance: FERROUS SULFATE
  12. SYMBICORT [Concomitant]
     Active Substance: BUDESONIDE\FORMOTEROL FUMARATE DIHYDRATE
  13. ONDANSETRON [Concomitant]
     Active Substance: ONDANSETRON
  14. FLOVENT [Concomitant]
     Active Substance: FLUTICASONE PROPIONATE
  15. SINGULAIR [Concomitant]
     Active Substance: MONTELUKAST SODIUM
  16. POLYETHYLENE GLYCOL [Concomitant]
     Active Substance: POLYETHYLENE GLYCOLS
  17. HIZENTRA [Suspect]
     Active Substance: HUMAN IMMUNOGLOBULIN G
     Dosage: UNK
     Route: 058
  18. DIPHENHYDRAMINE. [Concomitant]
     Active Substance: DIPHENHYDRAMINE
  19. AMITRIPTYLINE [Concomitant]
     Active Substance: AMITRIPTYLINE
  20. RANITIDINE. [Concomitant]
     Active Substance: RANITIDINE
  21. AZITHROMYCIN ANHYDROUS. [Concomitant]
     Active Substance: AZITHROMYCIN ANHYDROUS
  22. XOPENEX [Concomitant]
     Active Substance: LEVALBUTEROL HYDROCHLORIDE
  23. NASACORT [Concomitant]
     Active Substance: TRIAMCINOLONE ACETONIDE
  24. ACETAMINOPHEN. [Concomitant]
     Active Substance: ACETAMINOPHEN
  25. LIDOCAINE. [Concomitant]
     Active Substance: LIDOCAINE

REACTIONS (3)
  - Nausea [Not Recovered/Not Resolved]
  - Meningitis aseptic [Not Recovered/Not Resolved]
  - Headache [Not Recovered/Not Resolved]
